FAERS Safety Report 6581770-3 (Version None)
Quarter: 2010Q1

REPORT INFORMATION
  Report Type: 
  Country: None (occurrence: None)
  Receive Date: 20100215
  Receipt Date: 20100204
  Transmission Date: 20100710
  Serious: Yes (Other)
  Sender: FDA-Public Use
  Company Number: PHHY2010CA06442

PATIENT
  Sex: Male

DRUGS (16)
  1. SANDOSTATIN LAR [Suspect]
     Indication: NEUROENDOCRINE TUMOUR
     Dosage: 30 MG EVERY WEEK
     Route: 030
     Dates: start: 20100114
  2. HYDROCHLOROTHIAZIDE [Concomitant]
  3. ATACAND [Concomitant]
  4. APO-GLYBURIDE [Concomitant]
  5. LIPITOR [Concomitant]
  6. TERAZOSIN HCL [Concomitant]
  7. PANTOPRAZOLE [Concomitant]
  8. NITROLINGUAL PUMPSPRAY [Concomitant]
  9. NITRO-DUR [Concomitant]
     Dosage: UNK
  10. GABAPENTIN [Concomitant]
  11. SENOKOT [Concomitant]
  12. HYDROMORPHONE HYDROCHLORIDE [Concomitant]
  13. OXAZEPAM [Concomitant]
  14. VENTOLIN [Concomitant]
  15. LORAZEPAM [Concomitant]
  16. PMS DOCUSATE CALCIUM [Concomitant]

REACTIONS (7)
  - BLOOD GLUCOSE FLUCTUATION [None]
  - FATIGUE [None]
  - HYPOTENSION [None]
  - IMPAIRED HEALING [None]
  - LOWER RESPIRATORY TRACT INFECTION [None]
  - SWELLING FACE [None]
  - URINARY TRACT INFECTION [None]
